FAERS Safety Report 7842890-6 (Version None)
Quarter: 2011Q4

REPORT INFORMATION
  Report Type: 
  Country: None (occurrence: None)
  Receive Date: 20111025
  Receipt Date: 20111020
  Transmission Date: 20120403
  Serious: Yes (Other)
  Sender: FDA-Public Use
  Company Number: US-PFIZER INC-2011254364

PATIENT
  Sex: Female
  Weight: 51.701 kg

DRUGS (2)
  1. GENOTROPIN [Suspect]
     Indication: HYPOPITUITARISM
     Dosage: 0.2 MG, 1X/DAY
     Route: 030
     Dates: start: 20100101
  2. HYDROCORTISONE [Concomitant]
     Dosage: 40 MG, 1X/DAY

REACTIONS (4)
  - THYROID DISORDER [None]
  - NAIL GROWTH ABNORMAL [None]
  - HAIR GROWTH ABNORMAL [None]
  - INCORRECT ROUTE OF DRUG ADMINISTRATION [None]
